FAERS Safety Report 12454523 (Version 1)
Quarter: 2016Q2

REPORT INFORMATION
  Report Type: Spontaneous
  Country: US (occurrence: None)
  Receive Date: 20160609
  Receipt Date: 20160609
  Transmission Date: 20160815
  Serious: No
  Sender: FDA-Public Use
  Company Number: None

PATIENT
  Age: 64 Year
  Sex: Female
  Weight: 64.41 kg

DRUGS (13)
  1. METOPROLOL, 50 MG [Suspect]
     Active Substance: METOPROLOL
     Indication: CARDIOMYOPATHY
     Dosage: IN THE MORNING TAKEN BY MOUTH
     Route: 048
     Dates: start: 20160301, end: 20160608
  2. INSPRA [Concomitant]
     Active Substance: EPLERENONE
  3. FOLIC ACID. [Concomitant]
     Active Substance: FOLIC ACID
  4. METOPROLOL, 50 MG [Suspect]
     Active Substance: METOPROLOL
     Indication: CARDIAC FAILURE CONGESTIVE
     Dosage: IN THE MORNING TAKEN BY MOUTH
     Route: 048
     Dates: start: 20160301, end: 20160608
  5. EF [Concomitant]
  6. VITAMIN B COMPLEX [Concomitant]
     Active Substance: CYANOCOBALAMIN\DEXPANTHENOL\NIACINAMIDE\PYRIDOXINE HYDROCHLORIDE\RIBOFLAVIN 5^-PHOSPHATE SODIUM\THIAMINE HYDROCHLORIDE\VITAMIN B COMPLEX
  7. CANDESARTAN [Concomitant]
     Active Substance: CANDESARTAN
  8. ASPIRIN. [Concomitant]
     Active Substance: ASPIRIN
  9. VITAMIN D3 [Concomitant]
     Active Substance: CHOLECALCIFEROL
  10. CO-Q10 [Concomitant]
  11. PLAVIX [Concomitant]
     Active Substance: CLOPIDOGREL BISULFATE
  12. SELENIUM [Concomitant]
     Active Substance: SELENIUM
  13. CURCUMIN [Concomitant]
     Active Substance: CURCUMIN

REACTIONS (8)
  - Decreased appetite [None]
  - Weight increased [None]
  - Weight loss poor [None]
  - Gastrointestinal sounds abnormal [None]
  - Pain [None]
  - Eructation [None]
  - Abdominal distension [None]
  - Constipation [None]
